FAERS Safety Report 9719985 (Version 1)
Quarter: 2013Q4

REPORT INFORMATION
  Report Type: Spontaneous
  Country: GB (occurrence: GB)
  Receive Date: 20131128
  Receipt Date: 20131128
  Transmission Date: 20140711
  Serious: Yes (Hospitalization, Other)
  Sender: FDA-Public Use
  Company Number: GB-ASTRAZENECA-2013SE85359

PATIENT
  Age: 83 Year
  Sex: Male

DRUGS (12)
  1. TICAGRELOR [Suspect]
     Indication: ACUTE CORONARY SYNDROME
     Route: 048
     Dates: start: 20131031, end: 20131104
  2. AMLODIPINE BESILATE [Concomitant]
  3. ASPIRIN [Concomitant]
  4. ATORVASTATIN [Concomitant]
  5. BISOPROLOL [Concomitant]
  6. ENOXAPARIN [Concomitant]
  7. NICORANDIL [Concomitant]
  8. PARACETAMOL [Concomitant]
  9. RAMIPRIL [Concomitant]
  10. SENNA EXTRACT [Concomitant]
  11. SOLIFENACIN [Concomitant]
  12. TAMSULOSIN [Concomitant]

REACTIONS (2)
  - Arrhythmia [Unknown]
  - Bradycardia [Recovering/Resolving]
